FAERS Safety Report 5313491-9 (Version None)
Quarter: 2007Q2

REPORT INFORMATION
  Report Type: 
  Country: None (occurrence: None)
  Receive Date: 20070501
  Receipt Date: 20070424
  Transmission Date: 20071010
  Serious: Yes (Hospitalization)
  Sender: FDA-Public Use
  Company Number: FR-AVENTIS-200711467FR

PATIENT
  Age: 82 Year
  Sex: Female

DRUGS (13)
  1. KETEK [Suspect]
     Indication: PNEUMONIA
     Route: 048
     Dates: start: 20070316, end: 20070317
  2. TRIVASTAL                          /00397201/ [Suspect]
     Route: 048
     Dates: start: 20000615, end: 20070320
  3. NOCTRAN [Suspect]
     Route: 048
     Dates: start: 20000615, end: 20070320
  4. LASILIX                            /00032601/ [Concomitant]
  5. LEVOTHYROXINE SODIUM [Concomitant]
  6. DIFFU K [Concomitant]
  7. CARDENSIEL [Concomitant]
  8. DIGOXIN [Concomitant]
  9. PREVISCAN                          /00789001/ [Concomitant]
  10. NOVONORM [Concomitant]
  11. ALLOPURINOL [Concomitant]
  12. LANSOPRAZOLE [Concomitant]
  13. TARDYFERON                         /00023503/ [Concomitant]

REACTIONS (5)
  - BALANCE DISORDER [None]
  - CONFUSIONAL STATE [None]
  - DISORIENTATION [None]
  - FALL [None]
  - SOMNOLENCE [None]
